FAERS Safety Report 13531799 (Version 4)
Quarter: 2017Q3

REPORT INFORMATION
  Report Type: Report from Study
  Country: US (occurrence: US)
  Receive Date: 20170510
  Receipt Date: 20170710
  Transmission Date: 20171127
  Serious: Yes (Other)
  Sender: FDA-Public Use
  Company Number: US-PFIZER INC-2017169545

PATIENT
  Age: 62 Year
  Sex: Female

DRUGS (1)
  1. IBRANCE [Suspect]
     Active Substance: PALBOCICLIB
     Indication: BREAST CANCER
     Dosage: 125 MG, CYCLIC (DAILY, 3 WEEKS ON/1 WEEK OFF)
     Route: 048
     Dates: start: 20170407, end: 20170703

REACTIONS (8)
  - Anaemia [Recovering/Resolving]
  - Influenza like illness [Recovered/Resolved]
  - Decreased appetite [Unknown]
  - Chills [Unknown]
  - Vomiting [Unknown]
  - Neoplasm progression [Unknown]
  - Bone marrow failure [Unknown]
  - Nausea [Not Recovered/Not Resolved]

NARRATIVE: CASE EVENT DATE: 20170424
